FAERS Safety Report 23523470 (Version 1)
Quarter: 2024Q1

REPORT INFORMATION
  Report Type: Spontaneous
  Country: CO (occurrence: CO)
  Receive Date: 20240214
  Receipt Date: 20240214
  Transmission Date: 20240409
  Serious: Yes (Death, Other)
  Sender: FDA-Public Use
  Company Number: CO-BRISTOL-MYERS SQUIBB COMPANY-2024-023483

PATIENT
  Age: 69 Year
  Sex: Male
  Weight: 62.3 kg

DRUGS (6)
  1. NIVOLUMAB [Suspect]
     Active Substance: NIVOLUMAB
     Indication: Renal cell carcinoma
     Dosage: 1 SESSION PER MONTH
     Route: 042
     Dates: start: 202310
  2. CABOMETYX [Suspect]
     Active Substance: CABOZANTINIB S-MALATE
     Indication: Renal cell carcinoma
     Dosage: 40 MG, QD
     Route: 048
     Dates: start: 20231030
  3. CABOMETYX [Suspect]
     Active Substance: CABOZANTINIB S-MALATE
     Dosage: 20 MG, QD
     Route: 048
     Dates: start: 20240123, end: 20240124
  4. ACETAMINOPHEN [Concomitant]
     Active Substance: ACETAMINOPHEN
     Indication: Pain management
     Dosage: 500 MG, QID (1 TABLET EVERY 6 HOURS)
     Route: 048
     Dates: start: 202309
  5. MORPHINE [Concomitant]
     Active Substance: MORPHINE
     Indication: Pain management
     Dosage: 8 DROPS
     Route: 048
     Dates: start: 202309
  6. SCOPOLAMINE [Concomitant]
     Active Substance: SCOPOLAMINE
     Indication: Pain management
     Dosage: 50 MG, TID (1 TABLET EVERY 8 HOURS)
     Route: 048
     Dates: start: 202309

REACTIONS (1)
  - Death [Fatal]

NARRATIVE: CASE EVENT DATE: 20240204
